FAERS Safety Report 9302995 (Version 1)
Quarter: 2013Q2

REPORT INFORMATION
  Report Type: Spontaneous
  Country: CN (occurrence: CN)
  Receive Date: 20130522
  Receipt Date: 20130522
  Transmission Date: 20140414
  Serious: Yes (Hospitalization, Other)
  Sender: FDA-Public Use
  Company Number: CN-PFIZER INC-2013153507

PATIENT
  Age: 54 Year
  Sex: Female

DRUGS (1)
  1. METHYLPREDNISOLONE [Suspect]
     Indication: THROMBOCYTOPENIA
     Dosage: UNK
     Route: 048
     Dates: start: 20130410

REACTIONS (9)
  - Erythema [Unknown]
  - Asthenia [Unknown]
  - Hyperglycaemia [Unknown]
  - Swelling face [Unknown]
  - Pyrexia [Unknown]
  - Feeling abnormal [Unknown]
  - Confusional state [Unknown]
  - Hyperpyrexia [Recovered/Resolved]
  - Arthralgia [Unknown]
